FAERS Safety Report 19905786 (Version 1)
Quarter: 2021Q3

REPORT INFORMATION
  Report Type: Spontaneous
  Country: CA (occurrence: CA)
  Receive Date: 20210930
  Receipt Date: 20210930
  Transmission Date: 20211014
  Serious: Yes (Life-Threatening, Hospitalization)
  Sender: FDA-Public Use
  Company Number: CA-TEVA-2021-CA-1958447

PATIENT
  Age: 2 Year
  Sex: Male
  Weight: 15 kg

DRUGS (3)
  1. VINCRISTINE SULFATE. [Suspect]
     Active Substance: VINCRISTINE SULFATE
     Route: 065
  2. CYTARABINE INJECTION [Suspect]
     Active Substance: CYTARABINE
     Route: 065
  3. PEG?L?ASPARAGINASE [Suspect]
     Active Substance: PEGASPARGASE
     Route: 042

REACTIONS (1)
  - Febrile neutropenia [Recovering/Resolving]
